FAERS Safety Report 15670379 (Version 1)
Quarter: 2018Q4

REPORT INFORMATION
  Report Type: Spontaneous
  Country: US (occurrence: US)
  Receive Date: 20181129
  Receipt Date: 20181129
  Transmission Date: 20190205
  Serious: Yes (Hospitalization, Other)
  Sender: FDA-Public Use
  Company Number: US-OTSUKA-2018_016093

PATIENT
  Sex: Female

DRUGS (9)
  1. PAXIL [Concomitant]
     Active Substance: PAROXETINE HYDROCHLORIDE
     Indication: PRODUCT USED FOR UNKNOWN INDICATION
     Dosage: 25 MG, DAILY
     Route: 048
  2. PREMARIN [Concomitant]
     Active Substance: ESTROGENS, CONJUGATED
     Indication: PRODUCT USED FOR UNKNOWN INDICATION
     Dosage: 0.625 MG, DAILY
     Route: 048
  3. ARIPIPRAZOLE. [Concomitant]
     Active Substance: ARIPIPRAZOLE
     Indication: PRODUCT USED FOR UNKNOWN INDICATION
     Dosage: UNK
     Route: 065
     Dates: start: 20150622, end: 20160206
  4. SPIRONOLACTONE. [Concomitant]
     Active Substance: SPIRONOLACTONE
     Indication: PRODUCT USED FOR UNKNOWN INDICATION
     Dosage: 25 MG, QD
     Route: 048
  5. ABILIFY [Suspect]
     Active Substance: ARIPIPRAZOLE
     Indication: MAJOR DEPRESSION
     Dosage: 2 MG, QD
     Route: 065
     Dates: start: 2009, end: 2016
  6. LASIX [Concomitant]
     Active Substance: FUROSEMIDE
     Indication: PRODUCT USED FOR UNKNOWN INDICATION
     Dosage: 40 MG, BID
     Route: 048
  7. ABILIFY [Suspect]
     Active Substance: ARIPIPRAZOLE
     Indication: ANXIETY
  8. ZORVOLEX [Concomitant]
     Active Substance: DICLOFENAC
     Indication: PRODUCT USED FOR UNKNOWN INDICATION
     Dosage: 35 MG, TID
     Route: 048
  9. POTASSIUM CHLORIDE. [Concomitant]
     Active Substance: POTASSIUM CHLORIDE
     Indication: PRODUCT USED FOR UNKNOWN INDICATION
     Dosage: 15 ML, IN THE PM
     Route: 048

REACTIONS (42)
  - Alcoholism [Unknown]
  - Emotional distress [Unknown]
  - Type 2 diabetes mellitus [Unknown]
  - Pain in extremity [Unknown]
  - Syncope [Unknown]
  - Decreased appetite [Unknown]
  - Osteoarthritis [Unknown]
  - Laboratory test abnormal [Unknown]
  - Heat exhaustion [Unknown]
  - Hypokalaemia [Unknown]
  - Hypercholesterolaemia [Unknown]
  - Acute sinusitis [Unknown]
  - Productive cough [Unknown]
  - Herpes zoster [Unknown]
  - Bursitis [Unknown]
  - Upper respiratory tract infection [Unknown]
  - Pyrexia [Unknown]
  - Hospitalisation [Unknown]
  - Birth mark [Unknown]
  - Bronchitis [Unknown]
  - Neuropsychiatric symptoms [Unknown]
  - Economic problem [Unknown]
  - Osteonecrosis [Unknown]
  - Polyneuropathy [Unknown]
  - Lymphadenopathy [Unknown]
  - Malaise [Unknown]
  - Compulsive shopping [Unknown]
  - Weight decreased [Unknown]
  - Hypertension [Unknown]
  - Oedema [Unknown]
  - Nicotine dependence [Unknown]
  - Fatigue [Unknown]
  - Chalazion [Unknown]
  - Dysphagia [Unknown]
  - Product use in unapproved indication [Unknown]
  - Injury [Unknown]
  - Gout [Unknown]
  - Candida infection [Unknown]
  - Anaemia [Unknown]
  - Hypersensitivity [Unknown]
  - Gambling disorder [Recovered/Resolved]
  - Condition aggravated [Recovered/Resolved]

NARRATIVE: CASE EVENT DATE: 2009
